FAERS Safety Report 21655537 (Version 1)
Quarter: 2022Q4

REPORT INFORMATION
  Report Type: Spontaneous
  Country: US (occurrence: None)
  Receive Date: 20221125
  Receipt Date: 20221125
  Transmission Date: 20230113
  Serious: Yes (Other)
  Sender: FDA-Public Use
  Company Number: None

PATIENT
  Sex: Male

DRUGS (2)
  1. OCREVUS [Suspect]
     Active Substance: OCRELIZUMAB
     Indication: Multiple sclerosis
     Dosage: OTHER QUANTITY : 300MG/10ML;?OTHER FREQUENCY : EVERY 6 MONTHS;?
     Route: 042
     Dates: start: 20210707
  2. LOSARTAN POT TAB [Concomitant]

REACTIONS (1)
  - Transient ischaemic attack [None]
